FAERS Safety Report 12985819 (Version 9)
Quarter: 2017Q2

REPORT INFORMATION
  Report Type: Report from Study
  Country: US (occurrence: US)
  Receive Date: 20161130
  Receipt Date: 20170419
  Transmission Date: 20170830
  Serious: Yes (Other)
  Sender: FDA-Public Use
  Company Number: US-009507513-1611USA008314

PATIENT
  Age: 79 Year
  Sex: Male

DRUGS (21)
  1. PEMBROLIZUMAB. [Suspect]
     Active Substance: PEMBROLIZUMAB
     Dosage: DOSE UNSPECIFIED, EVERY THREE WEEKS
     Route: 042
     Dates: start: 20170117, end: 20170117
  2. OMEPRAZOLE. [Concomitant]
     Active Substance: OMEPRAZOLE
     Dosage: UNK
  3. HYDROCODONE [Concomitant]
     Active Substance: HYDROCODONE
     Dosage: UNK
  4. PEMBROLIZUMAB. [Suspect]
     Active Substance: PEMBROLIZUMAB
     Dosage: 2 MG/KG, EVERY 3 WEEKS
     Route: 042
     Dates: start: 20161114, end: 20161114
  5. PEMBROLIZUMAB. [Suspect]
     Active Substance: PEMBROLIZUMAB
     Dosage: 150 MG, EVERY THREE WEEKS
     Route: 042
     Dates: start: 20161205, end: 20161205
  6. COZAAR [Concomitant]
     Active Substance: LOSARTAN POTASSIUM
     Dosage: UNK
     Route: 048
  7. DICLOFENAC [Concomitant]
     Active Substance: DICLOFENAC
     Dosage: UNK
  8. PEMBROLIZUMAB. [Suspect]
     Active Substance: PEMBROLIZUMAB
     Indication: MALIGNANT MELANOMA
     Dosage: 2 MG/KG, EVERY 3 WEEKS
     Route: 042
     Dates: start: 20161024, end: 20161024
  9. TIOTROPIUM BROMIDE [Concomitant]
     Active Substance: TIOTROPIUM BROMIDE
     Dosage: UNK
  10. SYMBICORT [Concomitant]
     Active Substance: BUDESONIDE\FORMOTEROL FUMARATE DIHYDRATE
     Dosage: UNK
  11. CITALOPRAM [Concomitant]
     Active Substance: CITALOPRAM HYDROBROMIDE
     Dosage: UNK
  12. PEMBROLIZUMAB. [Suspect]
     Active Substance: PEMBROLIZUMAB
     Dosage: DOSE UNSPECIFIED, EVERY THREE WEEKS
     Route: 042
     Dates: start: 20170207, end: 20170207
  13. PEMBROLIZUMAB. [Suspect]
     Active Substance: PEMBROLIZUMAB
     Dosage: DOSE UNSPECIFIED, Q3W
     Route: 042
     Dates: start: 20170228, end: 20170228
  14. PEMBROLIZUMAB. [Suspect]
     Active Substance: PEMBROLIZUMAB
     Dosage: UNK, Q3W
     Route: 042
     Dates: start: 20170321, end: 20170321
  15. PEMBROLIZUMAB. [Suspect]
     Active Substance: PEMBROLIZUMAB
     Dosage: DOSE UNSPECIFIED, Q3W
     Route: 042
     Dates: start: 20170411, end: 20170411
  16. ACETAMINOPHEN. [Concomitant]
     Active Substance: ACETAMINOPHEN
     Dosage: UNK
     Route: 048
  17. PEMBROLIZUMAB. [Suspect]
     Active Substance: PEMBROLIZUMAB
     Dosage: 150 MG, EVERY THREE WEEKS
     Route: 042
     Dates: start: 20161227, end: 20161227
  18. ZOCOR [Concomitant]
     Active Substance: SIMVASTATIN
     Dosage: UNK
     Route: 048
  19. PROVENTIL [Concomitant]
     Active Substance: ALBUTEROL
     Dosage: UNK
  20. DIGOXIN. [Concomitant]
     Active Substance: DIGOXIN
     Dosage: UNK
  21. METOPROLOL. [Concomitant]
     Active Substance: METOPROLOL
     Dosage: UNK

REACTIONS (19)
  - Chronic obstructive pulmonary disease [Not Recovered/Not Resolved]
  - Nail growth abnormal [Not Recovered/Not Resolved]
  - Weight increased [Unknown]
  - Muscular weakness [Unknown]
  - Fatigue [Not Recovered/Not Resolved]
  - Lung disorder [Unknown]
  - Skin exfoliation [Not Recovered/Not Resolved]
  - Skin discolouration [Unknown]
  - Asthenia [Not Recovered/Not Resolved]
  - Headache [Recovered/Resolved]
  - Headache [Recovered/Resolved]
  - Adrenal gland cancer [Unknown]
  - Laziness [Unknown]
  - Rhinorrhoea [Not Recovered/Not Resolved]
  - Arthralgia [Recovered/Resolved]
  - Back injury [Unknown]
  - Hair growth abnormal [Not Recovered/Not Resolved]
  - Dry skin [Unknown]
  - Headache [Recovered/Resolved]

NARRATIVE: CASE EVENT DATE: 2016
